FAERS Safety Report 20245819 (Version 2)
Quarter: 2022Q1

REPORT INFORMATION
  Report Type: Spontaneous
  Country: JP (occurrence: JP)
  Receive Date: 20211229
  Receipt Date: 20220111
  Transmission Date: 20220423
  Serious: Yes (Life-Threatening, Hospitalization, Other)
  Sender: FDA-Public Use
  Company Number: JP-Accord-248363

PATIENT
  Age: 69 Year
  Sex: Female

DRUGS (2)
  1. CISPLATIN [Suspect]
     Active Substance: CISPLATIN
     Indication: Bladder cancer
     Dosage: 70 MG/M2 CISPLATIN ON DAY 2 FOR EACH 28 DAYS
  2. GEMCITABINE [Suspect]
     Active Substance: GEMCITABINE
     Indication: Bladder cancer
     Dosage: 1000 MG/M2  GEMCITABINE ON DAYS 1, 8,

REACTIONS (4)
  - Thrombocytosis [Unknown]
  - Anaemia [Unknown]
  - Thrombocytopenia [Unknown]
  - Leukopenia [Unknown]
